FAERS Safety Report 10488794 (Version 1)
Quarter: 2014Q3

REPORT INFORMATION
  Report Type: Spontaneous
  Country: US (occurrence: None)
  Receive Date: 20140930
  Receipt Date: 20140930
  Transmission Date: 20150326
  Serious: Yes (Hospitalization)
  Sender: FDA-Public Use
  Company Number: 2014AJA00031

PATIENT
  Age: 6 Year
  Sex: Male
  Weight: 18 kg

DRUGS (1)
  1. LEVETIRACETAM. [Suspect]
     Active Substance: LEVETIRACETAM
     Route: 048

REACTIONS (7)
  - Areflexia [None]
  - Heart rate increased [None]
  - Respiratory rate increased [None]
  - Overdose [None]
  - Hypotension [None]
  - Oxygen saturation decreased [None]
  - Lethargy [None]

NARRATIVE: CASE EVENT DATE: 201408
